FAERS Safety Report 13422111 (Version 2)
Quarter: 2021Q1

REPORT INFORMATION
  Report Type: Report from Study
  Country: US (occurrence: US)
  Receive Date: 20170410
  Receipt Date: 20210316
  Transmission Date: 20210419
  Serious: Yes (Hospitalization, Other)
  Sender: FDA-Public Use
  Company Number: US-AMGEN-USASL2017051620

PATIENT
  Sex: Female

DRUGS (5)
  1. ENBREL [Suspect]
     Active Substance: ETANERCEPT
     Dosage: UNK
     Route: 065
     Dates: end: 2019
  2. ENBREL [Suspect]
     Active Substance: ETANERCEPT
     Dosage: UNK UNK, QWK
     Route: 065
  3. ENBREL [Suspect]
     Active Substance: ETANERCEPT
     Dosage: 50 MILLIGRAM, QWK
     Route: 065
  4. ENBREL [Suspect]
     Active Substance: ETANERCEPT
     Indication: RHEUMATOID ARTHRITIS
     Dosage: UNK UNK, QWK
     Route: 065
     Dates: end: 2012
  5. ENBREL [Suspect]
     Active Substance: ETANERCEPT
     Dosage: UNK UNK, QWK
     Route: 065
     Dates: end: 2016

REACTIONS (17)
  - Splenomegaly [Unknown]
  - Hip arthroplasty [Unknown]
  - Influenza [Not Recovered/Not Resolved]
  - Mouth ulceration [Recovered/Resolved]
  - Staphylococcal sepsis [Unknown]
  - Skin lesion [Not Recovered/Not Resolved]
  - Interstitial lung disease [Unknown]
  - Knee arthroplasty [Unknown]
  - Foot operation [Unknown]
  - Rash erythematous [Unknown]
  - Sinus perforation [Not Recovered/Not Resolved]
  - Hepatic cirrhosis [Unknown]
  - Allergy to animal [Unknown]
  - Paranasal sinus hyposecretion [Unknown]
  - Limb operation [Unknown]
  - Pneumothorax [Unknown]
  - Anaemia [Not Recovered/Not Resolved]

NARRATIVE: CASE EVENT DATE: 2012
